FAERS Safety Report 16203882 (Version 1)
Quarter: 2019Q2

REPORT INFORMATION
  Report Type: Spontaneous
  Country: None (occurrence: NP)
  Receive Date: 20190416
  Receipt Date: 20190416
  Transmission Date: 20190711
  Serious: Yes (Other)
  Sender: FDA-Public Use
  Company Number: NP-POPULATION COUNCIL, INC.-2065906

PATIENT
  Age: 28 Year
  Sex: Female
  Weight: 45 kg

DRUGS (1)
  1. JADELLE [Suspect]
     Active Substance: LEVONORGESTREL
     Indication: CONTRACEPTION
     Route: 059
     Dates: start: 20170615, end: 20190401

REACTIONS (2)
  - Drug ineffective [None]
  - Pregnancy with implant contraceptive [None]

NARRATIVE: CASE EVENT DATE: 201812
